FAERS Safety Report 7751407-6 (Version None)
Quarter: 2011Q3

REPORT INFORMATION
  Report Type: 
  Country: None (occurrence: None)
  Receive Date: 20110914
  Receipt Date: 20110823
  Transmission Date: 20111222
  Serious: Yes (Hospitalization)
  Sender: FDA-Public Use
  Company Number: JP-ACTELION-A-CH2011-51986

PATIENT
  Sex: Female

DRUGS (11)
  1. OXYGEN [Concomitant]
  2. TRACLEER [Suspect]
     Dosage: 125 MG, BID
     Route: 048
     Dates: start: 20100629, end: 20100706
  3. WARFARIN SODIUM [Concomitant]
  4. LANSOPRAZOLE [Concomitant]
  5. TRACLEER [Suspect]
     Dosage: 62.5 MG, BID
     Route: 048
     Dates: start: 20100707, end: 20101013
  6. TRACLEER [Suspect]
     Dosage: 93.75 MG, BID
     Route: 048
     Dates: start: 20101014
  7. SILDENAFIL CITRATE [Concomitant]
  8. BENZBROMARONE [Concomitant]
  9. TRACLEER [Suspect]
     Indication: PULMONARY ARTERIAL HYPERTENSION
     Dosage: 62.5 MG, BID
     Route: 048
     Dates: start: 20100616, end: 20100628
  10. METHYLPREDNISOLONE [Concomitant]
  11. FUROSEMIDE [Concomitant]

REACTIONS (6)
  - ASPARTATE AMINOTRANSFERASE INCREASED [None]
  - HEPATIC FUNCTION ABNORMAL [None]
  - ALANINE AMINOTRANSFERASE INCREASED [None]
  - GAMMA-GLUTAMYLTRANSFERASE INCREASED [None]
  - NEPHROTIC SYNDROME [None]
  - PYREXIA [None]
